FAERS Safety Report 17287917 (Version 2)
Quarter: 2020Q1

REPORT INFORMATION
  Report Type: Spontaneous
  Country: BR (occurrence: BR)
  Receive Date: 20200120
  Receipt Date: 20200122
  Transmission Date: 20200409
  Serious: Yes (Hospitalization)
  Sender: FDA-Public Use
  Company Number: BR-JNJFOC-20200118622

PATIENT
  Age: 27 Year
  Sex: Female
  Weight: 60 kg

DRUGS (3)
  1. ATORVASTATIN [Concomitant]
     Active Substance: ATORVASTATIN
     Indication: BLOOD CHOLESTEROL
     Dosage: 1 TABLET OF 20MG A DAY FOR CHOLESTEROL
     Route: 065
  2. TYLENOL [Suspect]
     Active Substance: ACETAMINOPHEN
     Indication: HEADACHE
     Dosage: 35 DROPS ON 27-DEC AND THAN ON ALTERNATE DAYS, ALWAYS 35 DROPS ONCE A DAY
     Route: 048
     Dates: start: 20191227, end: 20200107
  3. ALDACTONE [Concomitant]
     Active Substance: SPIRONOLACTONE
     Indication: POLYCYSTIC OVARIES
     Dosage: 1 TABLET OF 50MG FOR THE OVARIES (SHE HAS POLICISTS)
     Route: 065

REACTIONS (4)
  - Inappropriate schedule of product administration [Recovering/Resolving]
  - Hepatic function abnormal [Recovered/Resolved]
  - Pruritus [Recovering/Resolving]
  - Erythema [Recovered/Resolved]

NARRATIVE: CASE EVENT DATE: 20191227
